FAERS Safety Report 9978679 (Version 1)
Quarter: 2014Q1

REPORT INFORMATION
  Report Type: Report from Study
  Country: US (occurrence: US)
  Receive Date: 20140306
  Receipt Date: 20140306
  Transmission Date: 20141002
  Serious: Yes (Hospitalization, Other)
  Sender: FDA-Public Use
  Company Number: US-ABBVIE-13P-163-1169867-00

PATIENT
  Sex: Female
  Weight: 95.34 kg

DRUGS (19)
  1. HUMIRA [Suspect]
     Indication: PSORIASIS
     Dates: start: 2011, end: 201302
  2. HUMIRA [Suspect]
     Dates: start: 201310
  3. ADVAIR [Concomitant]
     Indication: HYPERSENSITIVITY
  4. BUPROFEN [Concomitant]
     Indication: PAIN
  5. CYMBALTA [Concomitant]
     Indication: DEPRESSION
  6. DEPLIN [Concomitant]
     Indication: VITAMIN B COMPLEX DEFICIENCY
  7. DETROL [Concomitant]
     Indication: POLLAKIURIA
  8. DEXILANT [Concomitant]
     Indication: GASTROOESOPHAGEAL REFLUX DISEASE
  9. LIDODERM [Concomitant]
     Indication: PAIN
  10. LOSARTAN [Concomitant]
     Indication: HYPERTENSION
  11. METOCARBAMOL [Concomitant]
     Indication: MYALGIA
  12. MIRALAX [Concomitant]
     Indication: CONSTIPATION
  13. OXYCODONE [Concomitant]
     Indication: PAIN
  14. NASONEX [Concomitant]
     Indication: HYPERSENSITIVITY
  15. PROAIR [Concomitant]
     Indication: ASTHMA
  16. PROBIOTICS [Concomitant]
     Indication: SUPPLEMENTATION THERAPY
  17. RANITIDINE [Concomitant]
     Indication: GASTROOESOPHAGEAL REFLUX DISEASE
  18. TRAZODONE [Concomitant]
     Indication: DEPRESSION
  19. LYRICA [Concomitant]
     Indication: PAIN

REACTIONS (3)
  - Malignant neoplasm progression [Recovered/Resolved]
  - Wound infection staphylococcal [Recovered/Resolved]
  - Lymphoma [Unknown]
